FAERS Safety Report 5958664-7 (Version None)
Quarter: 2008Q4

REPORT INFORMATION
  Report Type: 
  Country: None (occurrence: None)
  Receive Date: 20081119
  Receipt Date: 20081112
  Transmission Date: 20090506
  Serious: Yes (Hospitalization)
  Sender: FDA-Public Use
  Company Number: US-ASTRAZENECA-2008UW23971

PATIENT
  Age: 70 Year
  Sex: Female

DRUGS (16)
  1. CRESTOR [Suspect]
     Route: 048
     Dates: start: 20080815, end: 20080820
  2. MICRO-K [Concomitant]
  3. AMILORIDE HYDROCHLORIDE [Concomitant]
  4. ALTACE [Concomitant]
  5. CALCIUM [Concomitant]
  6. CELEBREX [Concomitant]
  7. VICODIN [Concomitant]
  8. MECLIZINE [Concomitant]
  9. CLARITIN [Concomitant]
  10. TAGAMET [Concomitant]
  11. DHEA [Concomitant]
  12. PREMARIN [Concomitant]
  13. PROVIGIL [Concomitant]
  14. ALBUTEROL [Concomitant]
  15. GINKGO BILOBA [Concomitant]
  16. PLAVIX [Concomitant]

REACTIONS (4)
  - ANAEMIA [None]
  - HYPOKALAEMIA [None]
  - NON-CARDIAC CHEST PAIN [None]
  - UPPER RESPIRATORY TRACT INFECTION [None]
